FAERS Safety Report 4896273-1 (Version None)
Quarter: 2006Q1

REPORT INFORMATION
  Report Type: 
  Country: None (occurrence: None)
  Receive Date: 20060126
  Receipt Date: 20060117
  Transmission Date: 20060701
  Serious: Yes (Other)
  Sender: FDA-Public Use
  Company Number: 2006004002

PATIENT
  Sex: Female

DRUGS (3)
  1. VIRACEPT [Suspect]
     Indication: HIV TEST POSITIVE
     Dosage: 2500 MG, ORAL
     Route: 048
     Dates: start: 20050125, end: 20050523
  2. KALETRA [Suspect]
     Indication: HIV TEST POSITIVE
     Dosage: 1000 MG, ORAL
     Route: 048
     Dates: start: 20050622
  3. COMBIVIR [Suspect]
     Indication: HIV TEST POSITIVE
     Dosage: 900 MG, ORAL
     Route: 048
     Dates: start: 20050125

REACTIONS (3)
  - CONGENITAL ANOMALY [None]
  - DRUG EXPOSURE DURING PREGNANCY [None]
  - FACIAL DYSMORPHISM [None]
